FAERS Safety Report 8543740 (Version 5)
Quarter: 2013Q3

REPORT INFORMATION
  Report Type: Spontaneous
  Country: US (occurrence: US)
  Receive Date: 20120503
  Receipt Date: 20130813
  Transmission Date: 20140515
  Serious: Yes (Hospitalization, Other)
  Sender: FDA-Public Use
  Company Number: US-BAYER-2012-042687

PATIENT
  Age: 28 Year
  Sex: Female
  Weight: 129.25 kg

DRUGS (112)
  1. YAZ [Suspect]
     Indication: AMENORRHOEA
     Dosage: UNK
     Dates: start: 20090828, end: 20100405
  2. SINGULAIR [Concomitant]
     Indication: ASTHMA
     Dosage: 40 MG, QD
     Dates: start: 2007
  3. FLUTICASONE [Concomitant]
     Indication: ASTHMA
     Dosage: 5 MCG, ONCE DAILY
     Dates: start: 2009
  4. BUPROPION [Concomitant]
     Indication: DEPRESSION
     Dosage: UNK
     Dates: start: 2007
  5. BUPROPION [Concomitant]
     Indication: DEPRESSION
     Dosage: UNK
     Dates: start: 20100507
  6. XANAX [Concomitant]
     Indication: ANXIETY
     Dosage: UNK UNK, PRN
     Dates: start: 2007
  7. LEXAPRO [Concomitant]
     Indication: DEPRESSION
     Dosage: 1 PILL QD
     Dates: start: 2007
  8. LEXAPRO [Concomitant]
     Indication: ANXIETY
  9. GEODON [Concomitant]
     Indication: SUBSTANCE-INDUCED PSYCHOTIC DISORDER
     Dosage: 80 MG, BID
     Dates: start: 2007
  10. RANITIDINE [Concomitant]
     Indication: GASTROOESOPHAGEAL REFLUX DISEASE
     Dosage: 1 PILL QD
     Dates: start: 2007
  11. LYRICA [Concomitant]
     Indication: COMPLEX REGIONAL PAIN SYNDROME
     Dosage: 100 MG, TID
     Dates: start: 2008
  12. LYRICA [Concomitant]
     Indication: PAIN
  13. BACLOFEN [Concomitant]
     Indication: COMPLEX REGIONAL PAIN SYNDROME
     Dosage: 10 MG, 1 X
     Dates: start: 2008
  14. BACLOFEN [Concomitant]
     Indication: PAIN
  15. LIDODERM [Concomitant]
     Indication: COMPLEX REGIONAL PAIN SYNDROME
     Dosage: 5 %, BID
     Dates: start: 2008
  16. LIDODERM [Concomitant]
     Indication: PAIN
  17. MORPHINE [Concomitant]
     Indication: COMPLEX REGIONAL PAIN SYNDROME
     Dosage: UNK, PRN
     Dates: start: 2008
  18. MORPHINE [Concomitant]
     Indication: PAIN
  19. ZOFRAN [Concomitant]
     Indication: COMPLEX REGIONAL PAIN SYNDROME
     Dosage: UNK UNK, PRN
  20. ZOFRAN [Concomitant]
     Indication: PAIN
  21. MIRALAX [Concomitant]
     Indication: CONSTIPATION
     Dosage: UNK UNK, PRN
  22. FEMCON FE [Concomitant]
     Indication: AMENORRHOEA
     Dosage: 1 PILL QD
     Dates: start: 20100303
  23. BENZONATATE [Concomitant]
     Indication: ASTHMA
     Dosage: 1 PILL QD
     Dates: start: 2010
  24. XOPENEX [Concomitant]
     Indication: ASTHMA
     Dosage: 1 PILL QD
     Dates: start: 2010
  25. PROPOXYPHENE NAPSYLATE W/ACETAMINOPHENE [Concomitant]
     Indication: COMPLEX REGIONAL PAIN SYNDROME
     Dosage: ^100-650 T^
     Dates: start: 2010
  26. PROPOXYPHENE NAPSYLATE W/ACETAMINOPHENE [Concomitant]
     Indication: PAIN
  27. FLUCONAZOLE [Concomitant]
     Indication: FUNGAL SKIN INFECTION
     Dosage: 200 MG, QD
     Dates: start: 2010
  28. SYMBICORT [Concomitant]
     Indication: ASTHMA
     Dosage: 160/4.5 MG, 2 PUFF(S), BID
     Route: 045
     Dates: start: 2007
  29. PILOCARPINE [Concomitant]
     Indication: DRY MOUTH
     Dosage: 1 PILL, BID
     Dates: start: 2010
  30. ALBUTEROL [Concomitant]
     Indication: ASTHMA
     Dosage: UNK UNK, PRN
     Dates: start: 2010
  31. ALBUTEROL [Concomitant]
     Indication: ASTHMA
     Dosage: Q6H
  32. IPRATROPIUM [Concomitant]
     Indication: ASTHMA
     Dosage: 0.5/3MG,
     Dates: start: 2010
  33. CROMOLYN [Concomitant]
     Indication: ASTHMA
     Dosage: 20 MG/2, NEBULIZER
     Dates: start: 2010
  34. OMEPRAZOLE [Concomitant]
     Indication: GASTROOESOPHAGEAL REFLUX DISEASE
     Dosage: 1 PILL QD
     Dates: start: 2007, end: 2010
  35. PREDNISONE [Concomitant]
     Indication: ASTHMA
     Dosage: UNK
     Dates: start: 20100326
  36. ZYRTEC [Concomitant]
     Dosage: 10 MG, QD
     Route: 048
     Dates: start: 20100401
  37. DUONEB [Concomitant]
     Dosage: 3 ML, NEBULIZED QAM
     Dates: start: 20100401
  38. COLACE [Concomitant]
     Indication: CONSTIPATION
     Dosage: 100 MG, BID
     Route: 048
     Dates: start: 20100401
  39. COLACE [Concomitant]
     Indication: CONSTIPATION
     Dosage: UNK
     Dates: start: 2007, end: 2012
  40. SUDAFED [Concomitant]
     Dosage: 1, BID
     Route: 048
     Dates: start: 20100401
  41. CITRACAL [Concomitant]
     Dosage: 600 MG, BID
     Route: 048
     Dates: start: 20100401
  42. PRIALT [Concomitant]
     Dosage: VIA INTRATHECAL INFUSION PUMP
     Route: 037
     Dates: start: 20100401
  43. DIFLUCAN [Concomitant]
     Indication: CANDIDA INFECTION
  44. ZITHROMAX [Concomitant]
  45. MEDROL [Concomitant]
     Indication: ASTHMA
  46. SOLU-MEDROL [Concomitant]
     Dosage: 125 MG, EVERY 6 HOURS
     Route: 042
  47. LEVAQUIN [Concomitant]
     Dosage: 750 MG, QD
     Route: 042
  48. POTASSIUM [Concomitant]
     Dosage: UNK
     Dates: start: 2010
  49. NYSTOP [Concomitant]
     Indication: FUNGAL SKIN INFECTION
     Dosage: UNK
     Dates: start: 2010
  50. SMZ-TMP [Concomitant]
     Indication: IMMUNODEFICIENCY COMMON VARIABLE
     Dosage: UNK
     Dates: start: 2010
  51. BENADRYL [Concomitant]
     Indication: IMMUNODEFICIENCY COMMON VARIABLE
     Dosage: UNK UNK, PRN
     Dates: start: 2010
  52. IMMUNOGLOBULINS [Concomitant]
     Indication: IMMUNODEFICIENCY COMMON VARIABLE
     Dosage: UNK
     Dates: start: 2010
  53. NARCOL [Concomitant]
     Dosage: UNK
     Dates: start: 2010
  54. VITAMIN D [Concomitant]
     Indication: HYPOVITAMINOSIS
     Dosage: UNK
     Dates: start: 2010
  55. FOLIC ACID [Concomitant]
     Indication: HYPOVITAMINOSIS
     Dosage: UNK
     Dates: start: 2010
  56. VITAMIN B12 [Concomitant]
     Indication: HYPOVITAMINOSIS
     Dosage: UNK
     Dates: start: 2010
  57. AYR [Concomitant]
     Indication: NASAL DRYNESS
     Route: 045
  58. BUSPIRONE [Concomitant]
     Indication: ANXIETY
     Dosage: UNK
     Dates: start: 2010
  59. CALCIUM [Concomitant]
  60. CEFDINIR [Concomitant]
     Indication: ASTHMA
     Dosage: 300 MG, UNK
     Dates: start: 2010
  61. VOSPIRE ER [Concomitant]
     Dosage: UNK
     Dates: start: 20100301
  62. L-THYROXINE [Concomitant]
     Dosage: UNK
     Dates: start: 20111214
  63. L-THYROXINE [Concomitant]
     Dosage: UNK
     Dates: start: 20120110
  64. TUSSIONEX [Concomitant]
     Dosage: UNK
     Dates: start: 20100216
  65. TUSSIONEX [Concomitant]
     Dosage: UNK
     Dates: start: 20100301
  66. CEPHALEXIN [Concomitant]
     Dosage: UNK
     Dates: start: 20100430
  67. VANCOMYCIN [Concomitant]
  68. ROBAXIN [Concomitant]
  69. NEXIUM [Concomitant]
     Dosage: UNK
     Dates: start: 20111220
  70. NEXIUM [Concomitant]
     Dosage: UNK
     Dates: start: 20120307
  71. NEXIUM [Concomitant]
     Dosage: UNK
     Dates: start: 20120117
  72. ATIVAN [Concomitant]
  73. RIFAMPIN [Concomitant]
     Dosage: UNK
     Dates: start: 20100508
  74. CLINDAMYCIN [Concomitant]
     Dosage: UNK
     Dates: start: 20100508
  75. ARTIFICIAL TEARS [ARTIFICIAL TEARS] [Concomitant]
     Dosage: UNK
     Dates: start: 20100301
  76. ARTIFICIAL TEARS [ARTIFICIAL TEARS] [Concomitant]
     Dosage: UNK
     Dates: start: 20100422
  77. ARTIFICIAL TEARS [ARTIFICIAL TEARS] [Concomitant]
     Dosage: UNK
     Dates: start: 20100508
  78. AMBIEN [Concomitant]
     Dosage: UNK
     Dates: start: 20100301
  79. AMBIEN [Concomitant]
     Dosage: UNK
     Dates: start: 20100406
  80. ZOLPIDEM [Concomitant]
     Dosage: UNK
     Dates: start: 20100222
  81. ZOLPIDEM [Concomitant]
     Dosage: UNK
     Dates: start: 20100504
  82. GEMFIBROZIL [Concomitant]
     Dosage: UNK
     Dates: start: 20111206
  83. PROMETHAZINE HYDROCHLORIDE [Concomitant]
     Dosage: UNK
     Dates: start: 20111206
  84. ASPIRIN [Concomitant]
     Dosage: UNK
     Dates: start: 20111206
  85. ASPIRIN [Concomitant]
     Dosage: UNK
     Dates: start: 20120117
  86. CRESTOR [Concomitant]
     Dosage: UNK
     Dates: start: 20111206
  87. CRESTOR [Concomitant]
     Dosage: UNK
     Dates: start: 20120117
  88. CRESTOR [Concomitant]
     Dosage: UNK
     Dates: start: 20120306
  89. BACTRIM DS [Concomitant]
     Dosage: UNK
     Dates: start: 20111206
  90. FUROSEMIDE [Concomitant]
     Dosage: UNK
     Dates: start: 20111206
  91. FUROSEMIDE [Concomitant]
     Dosage: UNK
     Dates: start: 20120117
  92. FUROSEMIDE [Concomitant]
     Dosage: UNK
     Dates: start: 20110306
  93. SPIRONOLACTONE [Concomitant]
     Dosage: UNK
     Dates: start: 20111206
  94. SPIRONOLACTONE [Concomitant]
     Dosage: UNK
     Dates: start: 20120117
  95. SPIRONOLACTONE [Concomitant]
     Dosage: UNK
     Dates: start: 20120306
  96. FLORA [Concomitant]
     Dosage: UNK
     Dates: start: 20100507
  97. ALENDRONATE SODIUM [Concomitant]
     Dosage: UNK
     Dates: start: 20120128
  98. ALENDRONATE SODIUM [Concomitant]
     Dosage: UNK
     Dates: start: 20120227
  99. ALENDRONATE SODIUM [Concomitant]
     Dosage: UNK
     Dates: start: 20120306
  100. SYNTHROID [Concomitant]
     Dosage: UNK
     Dates: start: 20120209
  101. SYNTHROID [Concomitant]
     Dosage: UNK
     Dates: start: 20120117
  102. SYNTHROID [Concomitant]
     Dosage: UNK
     Dates: start: 20120306
  103. LACHYDRIN [LACTIC ACID] [Concomitant]
     Dosage: UNK
     Dates: start: 20120306
  104. WELLBUTRIN XL [Concomitant]
     Dosage: UNK
     Dates: start: 20120117
  105. ONE A DAY [Concomitant]
     Dosage: UNK
     Dates: start: 20120117
  106. VITAMIN B COMPLEX [Concomitant]
     Dosage: UNK
     Dates: start: 20111206
  107. MULTIVITAMIN [Concomitant]
     Dosage: UNK
     Dates: start: 20111206
  108. MULTIPLE VITAMINS [Concomitant]
     Dosage: UNK
     Dates: start: 20120306
  109. BACTROBAN [Concomitant]
     Dosage: UNK
     Dates: start: 20100422
  110. SALAGEN [Concomitant]
     Dosage: UNK
     Dates: start: 20100422
  111. SALAGEN [Concomitant]
     Dosage: UNK
     Dates: start: 20100507
  112. TOPAMAX [Concomitant]
     Dosage: UNK
     Dates: start: 20100117

REACTIONS (23)
  - Pulmonary embolism [Recovered/Resolved]
  - Deep vein thrombosis [Recovered/Resolved]
  - Injury [Recovered/Resolved]
  - Pain [None]
  - Pain in extremity [Recovered/Resolved]
  - Oedema peripheral [Recovered/Resolved]
  - Chest pain [Recovered/Resolved]
  - Dyspnoea [Recovered/Resolved]
  - Abdominal pain [None]
  - Epistaxis [None]
  - Procedural site reaction [None]
  - Thrombophlebitis superficial [None]
  - Cardiac disorder [None]
  - Pulmonary hypertension [None]
  - Nausea [None]
  - Subcutaneous haematoma [None]
  - Subcutaneous abscess [None]
  - Oedema peripheral [None]
  - Costochondritis [None]
  - Atelectasis [Recovered/Resolved]
  - Oedema [None]
  - Pulmonary fibrosis [None]
  - Off label use [None]
